FAERS Safety Report 10045779 (Version 3)
Quarter: 2014Q2

REPORT INFORMATION
  Report Type: Spontaneous
  Country: US (occurrence: US)
  Receive Date: 20140328
  Receipt Date: 20140519
  Transmission Date: 20141212
  Serious: No
  Sender: FDA-Public Use
  Company Number: US-009507513-1403USA008990

PATIENT
  Age: 72 Year
  Sex: Female
  Weight: 81.63 kg

DRUGS (4)
  1. OXYTROL FOR WOMEN [Suspect]
     Indication: HYPERTONIC BLADDER
     Dosage: 1 DF, Q4D
     Route: 062
     Dates: start: 20140224
  2. SIMVASTATIN [Concomitant]
     Indication: PRODUCT USED FOR UNKNOWN INDICATION
     Dosage: UNK, UNKNOWN
  3. SYNTHROID [Concomitant]
     Indication: THYROID DISORDER
     Dosage: UNK, UNKNOWN
  4. PROPRANOLOL HYDROCHLORIDE [Concomitant]
     Indication: TREMOR
     Dosage: UNK, UNKNOWN

REACTIONS (3)
  - Application site irritation [Recovered/Resolved]
  - Application site erythema [Recovered/Resolved]
  - Application site rash [Recovered/Resolved]
